FAERS Safety Report 8518640-7 (Version None)
Quarter: 2012Q3

REPORT INFORMATION
  Report Type: 
  Country: None (occurrence: None)
  Receive Date: 20120718
  Receipt Date: 20120711
  Transmission Date: 20120928
  Serious: No
  Sender: FDA-Public Use
  Company Number: US-PFIZER INC-2012169354

PATIENT
  Sex: Female

DRUGS (1)
  1. XALATAN [Suspect]
     Dosage: 1 GTT, 1X/DAY AT NIGHT

REACTIONS (2)
  - CHEST DISCOMFORT [None]
  - DRUG INEFFECTIVE [None]
